FAERS Safety Report 5356301-6 (Version None)
Quarter: 2007Q2

REPORT INFORMATION
  Report Type: 
  Country: None (occurrence: None)
  Receive Date: 20070613
  Receipt Date: 20070601
  Transmission Date: 20071010
  Serious: Yes (Hospitalization)
  Sender: FDA-Public Use
  Company Number: IT-PFIZER INC-2007045421

PATIENT
  Sex: Male

DRUGS (4)
  1. BASSADO [Suspect]
     Indication: HYPERPYREXIA
     Route: 048
     Dates: start: 20070523, end: 20070524
  2. SINTROM [Concomitant]
     Dates: start: 20050825, end: 20070501
  3. LANOXIN [Concomitant]
     Dates: start: 20050825, end: 20070501
  4. ENAPREN [Concomitant]

REACTIONS (2)
  - PETECHIAE [None]
  - RASH GENERALISED [None]
